FAERS Safety Report 13023603 (Version 1)
Quarter: 2016Q4

REPORT INFORMATION
  Report Type: Spontaneous
  Country: US (occurrence: US)
  Receive Date: 20161212
  Receipt Date: 20161212
  Transmission Date: 20170207
  Serious: Yes (Other)
  Sender: FDA-Public Use
  Company Number: None

PATIENT
  Age: 34 Year
  Sex: Female
  Weight: 97.2 kg

DRUGS (10)
  1. YAZ [Concomitant]
     Active Substance: DROSPIRENONE\ETHINYL ESTRADIOL
  2. TOPAMAX [Concomitant]
     Active Substance: TOPIRAMATE
  3. COQ10 [Concomitant]
     Active Substance: UBIDECARENONE
  4. MELATONIN [Concomitant]
     Active Substance: MELATONIN
  5. MAGNESIUM OXIDE. [Concomitant]
     Active Substance: MAGNESIUM OXIDE
  6. RESTASIS [Concomitant]
     Active Substance: CYCLOSPORINE
  7. ESOMEPRAZOLE MAG DR 40MG [Suspect]
     Active Substance: ESOMEPRAZOLE MAGNESIUM
     Indication: GASTROOESOPHAGEAL REFLUX DISEASE
     Dosage: ?          QUANTITY:180 CAPSULE(S);?
     Route: 048
     Dates: start: 20161117, end: 20161210
  8. ESOMEPRAZOLE MAG DR 40MG [Suspect]
     Active Substance: ESOMEPRAZOLE MAGNESIUM
     Indication: GASTRITIS
     Dosage: ?          QUANTITY:180 CAPSULE(S);?
     Route: 048
     Dates: start: 20161117, end: 20161210
  9. DULOXETINE. [Concomitant]
     Active Substance: DULOXETINE
  10. BACLOFEN. [Concomitant]
     Active Substance: BACLOFEN

REACTIONS (7)
  - Condition aggravated [None]
  - Gastrooesophageal reflux disease [None]
  - Insomnia [None]
  - Oropharyngeal pain [None]
  - Cough [None]
  - Drug ineffective [None]
  - Dysphonia [None]

NARRATIVE: CASE EVENT DATE: 20161212
